FAERS Safety Report 22815721 (Version 3)
Quarter: 2024Q2

REPORT INFORMATION
  Report Type: Report from Study
  Country: CA (occurrence: CA)
  Receive Date: 20230811
  Receipt Date: 20240524
  Transmission Date: 20240715
  Serious: Yes (Hospitalization, Other)
  Sender: FDA-Public Use
  Company Number: CA-JNJFOC-20230826144

PATIENT
  Age: 83 Year
  Sex: Male
  Weight: 61.29 kg

DRUGS (3)
  1. SIMPONI [Suspect]
     Active Substance: GOLIMUMAB
     Indication: Rheumatoid arthritis
     Route: 058
     Dates: start: 20220517
  2. SIMPONI [Suspect]
     Active Substance: GOLIMUMAB
     Route: 058
  3. IRON [Suspect]
     Active Substance: IRON
     Indication: Product used for unknown indication
     Route: 065

REACTIONS (4)
  - Haematological infection [Unknown]
  - Transfusion [Unknown]
  - Rash pruritic [Recovered/Resolved]
  - Mineral supplementation [Recovered/Resolved]

NARRATIVE: CASE EVENT DATE: 20230804
